FAERS Safety Report 8963037 (Version 3)
Quarter: 2013Q1

REPORT INFORMATION
  Report Type: Spontaneous
  Country: US (occurrence: US)
  Receive Date: 20121213
  Receipt Date: 20130123
  Transmission Date: 20140127
  Serious: Yes (Other)
  Sender: FDA-Public Use
  Company Number: US-PFIZER INC-2012312937

PATIENT
  Age: 66 Year
  Sex: Female

DRUGS (8)
  1. LIPITOR [Suspect]
     Dosage: 10 MG, 1X/DAY (1 DAILY)
  2. XANAX [Concomitant]
     Dosage: UNK
  3. PAXIL [Concomitant]
     Dosage: UNK
  4. NEXIUM [Concomitant]
     Dosage: UNK
  5. GLUCOTROL [Concomitant]
     Dosage: UNK
  6. SYNTHROID [Concomitant]
     Dosage: UNK
  7. VASOTEC [Concomitant]
     Dosage: UNK
  8. PREMARIN [Concomitant]
     Dosage: UNK

REACTIONS (3)
  - Gallbladder disorder [Unknown]
  - Tooth extraction [Unknown]
  - Malaise [Unknown]
